FAERS Safety Report 13534991 (Version 1)
Quarter: 2017Q2

REPORT INFORMATION
  Report Type: Spontaneous
  Country: US (occurrence: US)
  Receive Date: 20170510
  Receipt Date: 20170510
  Transmission Date: 20170830
  Serious: Yes (Other)
  Sender: FDA-Public Use
  Company Number: None

PATIENT
  Age: 59 Year
  Sex: Female
  Weight: 66.15 kg

DRUGS (2)
  1. EMEND [Suspect]
     Active Substance: APREPITANT
     Indication: CHEMOTHERAPY
     Dosage: ?          OTHER FREQUENCY:ONCE;?
     Route: 042
     Dates: start: 20170505, end: 20170505
  2. IXEMPRA [Concomitant]
     Active Substance: IXABEPILONE

REACTIONS (3)
  - Cough [None]
  - Dyspnoea [None]
  - Seizure like phenomena [None]

NARRATIVE: CASE EVENT DATE: 20170505
